FAERS Safety Report 19707131 (Version 1)
Quarter: 2021Q3

REPORT INFORMATION
  Report Type: Spontaneous
  Country: US (occurrence: US)
  Receive Date: 20210817
  Receipt Date: 20210817
  Transmission Date: 20211014
  Serious: Yes (Hospitalization)
  Sender: FDA-Public Use
  Company Number: None

PATIENT
  Age: 63 Year
  Sex: Female
  Weight: 97.1 kg

DRUGS (4)
  1. SODIUM CHLORIDE. [Suspect]
     Active Substance: SODIUM CHLORIDE
     Dosage: ?          OTHER FREQUENCY:ONCE;?
     Route: 040
  2. REMDESIVIR. [Concomitant]
     Active Substance: REMDESIVIR
     Dates: start: 20210815, end: 20210815
  3. SODIUM CHLORIDE 0.9% [Concomitant]
     Active Substance: SODIUM CHLORIDE
     Dates: start: 20210815, end: 20210815
  4. VEKLURY [Suspect]
     Active Substance: REMDESIVIR
     Indication: COVID-19
     Dosage: ?          OTHER FREQUENCY:ONCE;?
     Route: 040
     Dates: start: 20210815, end: 20210815

REACTIONS (11)
  - Dyspnoea [None]
  - Electrocardiogram Q wave abnormal [None]
  - Acute myocardial infarction [None]
  - Infusion related reaction [None]
  - COVID-19 pneumonia [None]
  - Oxygen saturation decreased [None]
  - Myocarditis [None]
  - Feeling abnormal [None]
  - Heart rate increased [None]
  - Troponin increased [None]
  - Supraventricular tachycardia [None]

NARRATIVE: CASE EVENT DATE: 20210815
